FAERS Safety Report 8116706-7 (Version None)
Quarter: 2012Q1

REPORT INFORMATION
  Report Type: 
  Country: None (occurrence: None)
  Receive Date: 20120206
  Receipt Date: 20120131
  Transmission Date: 20120608
  Serious: Yes (Other)
  Sender: FDA-Public Use
  Company Number: PHHY2012CN008995

PATIENT
  Age: 20 Year
  Sex: Male

DRUGS (2)
  1. SEBIVO [Suspect]
     Indication: HEPATITIS B
     Dosage: 600 MG DAILY
     Route: 048
     Dates: end: 20120121
  2. ADEFOVIR DIPIVOXIL [Concomitant]
     Indication: HEPATITIS B
     Dosage: UNK

REACTIONS (5)
  - BLOOD CREATINE PHOSPHOKINASE INCREASED [None]
  - MUSCULAR WEAKNESS [None]
  - BLOOD URIC ACID INCREASED [None]
  - OEDEMA PERIPHERAL [None]
  - MYALGIA [None]
